FAERS Safety Report 5253224-8 (Version None)
Quarter: 2007Q1

REPORT INFORMATION
  Report Type: 
  Country: None (occurrence: None)
  Receive Date: 20061201
  Receipt Date: 20060830
  Transmission Date: 20070707
  Serious: No
  Sender: FDA-Public Use
  Company Number: 2006PV020406

PATIENT
  Age: 70 Year
  Sex: Male
  Weight: 124.7392 kg

DRUGS (8)
  1. BYETTA [Suspect]
     Indication: DIABETES MELLITUS NON-INSULIN-DEPENDENT
     Dosage: 10 MCG;BID;SC
     Route: 058
     Dates: start: 20060829
  2. METFORMIN HCL [Concomitant]
  3. AMARYL [Concomitant]
  4. NEXIUM [Concomitant]
  5. COREG [Concomitant]
  6. ASPIRIN [Concomitant]
  7. DIOVAN [Concomitant]
  8. LIPITOR [Concomitant]

REACTIONS (1)
  - HYPERTENSION [None]
